FAERS Safety Report 18386234 (Version 1)
Quarter: 2020Q4

REPORT INFORMATION
  Report Type: Spontaneous
  Country: US (occurrence: US)
  Receive Date: 20201014
  Receipt Date: 20201014
  Transmission Date: 20210114
  Serious: Yes (Hospitalization)
  Sender: FDA-Public Use
  Company Number: None

PATIENT
  Age: 72 Year
  Sex: Female
  Weight: 82.8 kg

DRUGS (18)
  1. ADVIL [Concomitant]
     Active Substance: IBUPROFEN
  2. QUETIAPINE. [Concomitant]
     Active Substance: QUETIAPINE
  3. PANTOPRAZOLE [Concomitant]
     Active Substance: PANTOPRAZOLE
  4. DIPHENHYDRAMINE. [Concomitant]
     Active Substance: DIPHENHYDRAMINE
  5. LISINOPRIL. [Concomitant]
     Active Substance: LISINOPRIL
  6. ATORVASTATIN [Concomitant]
     Active Substance: ATORVASTATIN
  7. AFINITOR [Suspect]
     Active Substance: EVEROLIMUS
     Indication: CARCINOID TUMOUR
     Route: 048
     Dates: start: 20200827
  8. JANUVIA [Concomitant]
     Active Substance: SITAGLIPTIN PHOSPHATE
  9. SANDOSTATIN [Concomitant]
     Active Substance: OCTREOTIDE ACETATE
  10. DULOXETINE. [Concomitant]
     Active Substance: DULOXETINE
  11. ESZOPICLONE. [Concomitant]
     Active Substance: ESZOPICLONE
  12. ASPIRIN. [Concomitant]
     Active Substance: ASPIRIN
  13. AMLODPIINE [Concomitant]
  14. TRAMADOL. [Concomitant]
     Active Substance: TRAMADOL
  15. REPAGLINIDE. [Concomitant]
     Active Substance: REPAGLINIDE
  16. FUROSEMIDE. [Concomitant]
     Active Substance: FUROSEMIDE
  17. DEXAMETHASONE. [Concomitant]
     Active Substance: DEXAMETHASONE
  18. FLUTICASONE-SALMETEROL [Concomitant]

REACTIONS (2)
  - Blood pressure increased [None]
  - Blood glucose increased [None]

NARRATIVE: CASE EVENT DATE: 20201013
